FAERS Safety Report 5685229-7 (Version None)
Quarter: 2008Q1

REPORT INFORMATION
  Report Type: 
  Country: None (occurrence: None)
  Receive Date: 20080328
  Receipt Date: 20080318
  Transmission Date: 20080703
  Serious: Yes (Other)
  Sender: FDA-Public Use
  Company Number: US-ELI_LILLY_AND_COMPANY-US200803004292

PATIENT
  Age: 65 Year
  Sex: Female

DRUGS (5)
  1. CYMBALTA [Suspect]
     Indication: CHRONIC FATIGUE SYNDROME
     Dosage: 20 MG, UNK
     Dates: start: 20070301
  2. CYMBALTA [Suspect]
     Dosage: 40 MG, UNK
  3. CYMBALTA [Suspect]
     Dosage: 60 MG, UNK
  4. ZOCOR [Concomitant]
  5. ASPIRIN [Concomitant]
     Dosage: 325 MG, DAILY (1/D)

REACTIONS (2)
  - ANXIETY [None]
  - PLATELET COUNT INCREASED [None]
